FAERS Safety Report 8567543-0 (Version None)
Quarter: 2012Q3

REPORT INFORMATION
  Report Type: 
  Country: None (occurrence: None)
  Receive Date: 20120803
  Receipt Date: 20120802
  Transmission Date: 20120928
  Serious: Yes (Hospitalization, Other)
  Sender: FDA-Public Use
  Company Number: PHEH2006US02521

PATIENT
  Sex: Female
  Weight: 69 kg

DRUGS (17)
  1. TAMOXIFEN CITRATE [Concomitant]
     Indication: BREAST CANCER
     Dates: end: 20000401
  2. OXYCONTIN [Concomitant]
     Dosage: 10 MG, Q12H
  3. AREDIA [Suspect]
     Indication: METASTASES TO BONE
     Dosage: 90 MG, QMO
     Route: 042
     Dates: start: 20001009
  4. ZOMETA [Suspect]
     Indication: METASTASES TO BONE
     Dosage: 4 MG, QMO
     Route: 042
     Dates: start: 20030428, end: 20060101
  5. TAXOTERE [Concomitant]
     Indication: BREAST CANCER
  6. ADRIAMYCIN PFS [Concomitant]
     Indication: BREAST CANCER
  7. CARBOPLATIN [Concomitant]
  8. XELODA [Concomitant]
     Indication: BREAST CANCER
  9. CYTOXAN [Concomitant]
     Indication: BREAST CANCER
  10. PACLITAXEL [Concomitant]
     Indication: BREAST CANCER
  11. DURAGESIC-100 [Concomitant]
     Dosage: 150 UG, UNK
  12. ANASTROZOLE [Concomitant]
     Indication: CHEMOTHERAPY
  13. VINORELBINE [Concomitant]
     Indication: CHEMOTHERAPY
     Dates: start: 20030501
  14. HERCEPTIN [Concomitant]
  15. TRASTUZUMAB [Concomitant]
     Indication: BREAST CANCER
  16. OXYCODONE HCL [Concomitant]
     Dosage: 5 MG, Q4H
  17. TAXOL [Concomitant]
     Indication: BREAST CANCER

REACTIONS (52)
  - SYNCOPE [None]
  - OSTEONECROSIS OF JAW [None]
  - DENTAL CARIES [None]
  - HEADACHE [None]
  - URINARY TRACT INFECTION [None]
  - HYDRONEPHROSIS [None]
  - PAIN IN JAW [None]
  - ASCITES [None]
  - HYPOKALAEMIA [None]
  - HAEMOPTYSIS [None]
  - METASTASIS [None]
  - CHEST PAIN [None]
  - ABDOMINAL PAIN [None]
  - VISION BLURRED [None]
  - PYREXIA [None]
  - ACCESSORY SPLEEN [None]
  - HYPOTENSION [None]
  - BONE LOSS [None]
  - OEDEMA MOUTH [None]
  - ERYTHEMA [None]
  - METASTASES TO CENTRAL NERVOUS SYSTEM [None]
  - PERICARDIAL EFFUSION [None]
  - UROSEPSIS [None]
  - SYSTEMIC INFLAMMATORY RESPONSE SYNDROME [None]
  - COMPUTERISED TOMOGRAM ABNORMAL [None]
  - HYPERTENSION [None]
  - THYROID DISORDER [None]
  - PAIN [None]
  - EMOTIONAL DISTRESS [None]
  - TOOTHACHE [None]
  - NEOPLASM PROGRESSION [None]
  - TUMOUR MARKER INCREASED [None]
  - LUNG NEOPLASM [None]
  - FALL [None]
  - EJECTION FRACTION DECREASED [None]
  - INJURY [None]
  - BONE DISORDER [None]
  - ORAL PAIN [None]
  - PLEURAL EFFUSION [None]
  - VENTRICULAR HYPOKINESIA [None]
  - ORAL INFECTION [None]
  - MITRAL VALVE INCOMPETENCE [None]
  - INTERVERTEBRAL DISC PROTRUSION [None]
  - OSTEOARTHRITIS [None]
  - ESCHERICHIA INFECTION [None]
  - LEUKOPENIA [None]
  - ALOPECIA [None]
  - NEOPLASM MALIGNANT [None]
  - BACK PAIN [None]
  - TRICUSPID VALVE INCOMPETENCE [None]
  - DYSPNOEA [None]
  - PARONYCHIA [None]
